FAERS Safety Report 9280370 (Version 1)
Quarter: 2013Q2

REPORT INFORMATION
  Report Type: Spontaneous
  Country: US (occurrence: None)
  Receive Date: 20130507
  Receipt Date: 20130507
  Transmission Date: 20140414
  Serious: Yes (Disabling)
  Sender: FDA-Public Use
  Company Number: None

PATIENT
  Age: 46 Year
  Sex: Male
  Weight: 65.77 kg

DRUGS (1)
  1. CIPRO [Suspect]
     Route: 048
     Dates: start: 20120906, end: 20120906

REACTIONS (7)
  - Rash [None]
  - Skin burning sensation [None]
  - Skin exfoliation [None]
  - Insomnia [None]
  - Tendon pain [None]
  - Arthralgia [None]
  - Depression [None]
